FAERS Safety Report 14695206 (Version 1)
Quarter: 2018Q1

REPORT INFORMATION
  Report Type: Spontaneous
  Country: AT (occurrence: AT)
  Receive Date: 20180329
  Receipt Date: 20180329
  Transmission Date: 20180509
  Serious: Yes (Other)
  Sender: FDA-Public Use
  Company Number: AT-ELI_LILLY_AND_COMPANY-AT201803008061

PATIENT
  Sex: Female

DRUGS (3)
  1. OLARATUMAB [Suspect]
     Active Substance: OLARATUMAB
     Indication: PRODUCT USED FOR UNKNOWN INDICATION
     Dosage: UNK UNK, UNKNOWN
     Route: 065
     Dates: start: 201705, end: 201707
  2. VOTRIENT [Suspect]
     Active Substance: PAZOPANIB HYDROCHLORIDE
     Indication: PRODUCT USED FOR UNKNOWN INDICATION
     Dosage: UNK UNK, UNKNOWN
     Route: 065
     Dates: start: 201702, end: 201705
  3. DOXORUBICIN [Suspect]
     Active Substance: DOXORUBICIN
     Indication: PRODUCT USED FOR UNKNOWN INDICATION
     Dosage: UNK UNK, UNKNOWN
     Route: 065
     Dates: start: 201705, end: 201707

REACTIONS (7)
  - Hepatic enzyme increased [Recovered/Resolved]
  - Gamma-glutamyltransferase increased [Unknown]
  - Malignant neoplasm progression [Unknown]
  - Blood bilirubin increased [Unknown]
  - Blood glucose increased [Unknown]
  - Haematocrit decreased [Unknown]
  - C-reactive protein increased [Unknown]
